FAERS Safety Report 14223175 (Version 8)
Quarter: 2018Q2

REPORT INFORMATION
  Report Type: Report from Study
  Country: US (occurrence: US)
  Receive Date: 20171124
  Receipt Date: 20180628
  Transmission Date: 20180711
  Serious: Yes (Death, Hospitalization)
  Sender: FDA-Public Use
  Company Number: US-ROCHE-2024684

PATIENT
  Age: 51 Year
  Sex: Male
  Weight: 58 kg

DRUGS (53)
  1. ATEZOLIZUMAB. [Suspect]
     Active Substance: ATEZOLIZUMAB
     Dosage: START TIME OF INFUSION 17:48, END TIME 18:17
     Route: 042
     Dates: start: 20171011
  2. BLINDED TRILACICLIB [Suspect]
     Active Substance: TRILACICLIB
     Indication: BONE MARROW FAILURE
     Dosage: START TIME OF INFUSION 12:20, END TIME 12:50
     Route: 042
     Dates: start: 20170921
  3. CARBOPLATIN. [Suspect]
     Active Substance: CARBOPLATIN
     Dosage: START TIME OF INFUSION 14:30, END TIME 15:30
     Route: 042
     Dates: start: 20171101
  4. ETOPOSIDE. [Suspect]
     Active Substance: ETOPOSIDE
     Dosage: DOSE: 168, START TIME OF INFUSION 16:25, END TIME 17:30
     Route: 042
     Dates: start: 20171103
  5. MORPHINE [Concomitant]
     Active Substance: MORPHINE
     Route: 042
     Dates: start: 20171101, end: 20171101
  6. CLARITIN [Concomitant]
     Active Substance: LORATADINE
     Indication: SEASONAL ALLERGY
     Route: 048
     Dates: start: 20170530
  7. ALOXI [Concomitant]
     Active Substance: PALONOSETRON HYDROCHLORIDE
     Route: 042
     Dates: start: 20171011, end: 20171011
  8. MS CONTIN [Concomitant]
     Active Substance: MORPHINE SULFATE
     Route: 048
     Dates: start: 20171012
  9. CARBOPLATIN. [Suspect]
     Active Substance: CARBOPLATIN
     Dosage: START TIME OF INFUSION 15:08, END TIME 16:08
     Route: 042
     Dates: start: 20171011
  10. ETOPOSIDE. [Suspect]
     Active Substance: ETOPOSIDE
     Indication: SMALL CELL LUNG CANCER
     Dosage: DOSE: 177MG (100 MG/M2), START TIME OF INFUSION 14:20, END TIME 15:20?100 MG/M2 WILL BE ADMINISTERED
     Route: 042
     Dates: start: 20170921
  11. NYSTATIN. [Concomitant]
     Active Substance: NYSTATIN
     Indication: COUGH
     Route: 048
     Dates: start: 20170620
  12. SENNOSIDES. [Concomitant]
     Active Substance: SENNOSIDES
     Indication: CONSTIPATION
     Route: 048
     Dates: start: 20170919
  13. LORAZEPAM. [Concomitant]
     Active Substance: LORAZEPAM
     Route: 030
     Dates: start: 20171101, end: 20171101
  14. LORAZEPAM. [Concomitant]
     Active Substance: LORAZEPAM
     Route: 030
     Dates: start: 20171127, end: 20171127
  15. MORPHINE [Concomitant]
     Active Substance: MORPHINE
     Route: 042
     Dates: start: 20171102, end: 20171102
  16. MORPHINE [Concomitant]
     Active Substance: MORPHINE
     Route: 042
     Dates: start: 20171127, end: 20171127
  17. MIRTAZAPINE. [Concomitant]
     Active Substance: MIRTAZAPINE
     Indication: DEPRESSION
     Route: 048
     Dates: start: 20170922
  18. ATORVASTATIN [Concomitant]
     Active Substance: ATORVASTATIN
     Route: 048
     Dates: start: 20170922
  19. DEXAMETHASONE. [Concomitant]
     Active Substance: DEXAMETHASONE
     Route: 042
     Dates: start: 20170923, end: 20170923
  20. BLINDED TRILACICLIB [Suspect]
     Active Substance: TRILACICLIB
     Dosage: START TIME OF INFUSION 15:45, END TIME 16:15
     Route: 042
     Dates: start: 20171103
  21. MEGACE [Concomitant]
     Active Substance: MEGESTROL ACETATE
     Indication: WEIGHT DECREASED
     Route: 048
     Dates: start: 20171101
  22. GABAPENTIN. [Concomitant]
     Active Substance: GABAPENTIN
     Route: 065
     Dates: start: 20170906
  23. CARBOPLATIN. [Suspect]
     Active Substance: CARBOPLATIN
     Indication: SMALL CELL LUNG CANCER
     Dosage: START TIME OF INFUSION 13:05, END TIME 14:05 (650 MG)?TARGET AUC = 5 MILLIGRAMS PER MILLILITER PER M
     Route: 042
     Dates: start: 20170921
  24. LEVALBUTEROL. [Concomitant]
     Active Substance: LEVALBUTEROL
     Indication: DYSPNOEA
     Route: 050
     Dates: start: 20170922
  25. DEXAMETHASONE. [Concomitant]
     Active Substance: DEXAMETHASONE
     Indication: PREMEDICATION
     Route: 042
     Dates: start: 20170922, end: 20170922
  26. ETOPOSIDE. [Suspect]
     Active Substance: ETOPOSIDE
     Dosage: DOSE: 168, START TIME OF INFUSION 17:10, END TIME 18:10
     Route: 042
     Dates: start: 20171013
  27. GABAPENTIN. [Concomitant]
     Active Substance: GABAPENTIN
     Indication: PAIN
  28. MORPHINE [Concomitant]
     Active Substance: MORPHINE
     Indication: BACK PAIN
     Route: 042
     Dates: start: 20171011, end: 20171011
  29. ALOXI [Concomitant]
     Active Substance: PALONOSETRON HYDROCHLORIDE
     Route: 042
     Dates: start: 20171101, end: 20171101
  30. ZOFRAN [Concomitant]
     Active Substance: ONDANSETRON HYDROCHLORIDE
     Indication: NAUSEA
     Dosage: EVERY HRS INCREMENT
     Route: 048
     Dates: start: 20171101
  31. ZOLPIDEM [Concomitant]
     Active Substance: ZOLPIDEM\ZOLPIDEM TARTRATE
     Indication: DEPRESSION
     Route: 048
     Dates: start: 20170922
  32. ERGOCALCIFEROL. [Concomitant]
     Active Substance: ERGOCALCIFEROL
     Indication: VITAMIN D DEFICIENCY
     Route: 048
     Dates: start: 20170530
  33. MIRALAX [Concomitant]
     Active Substance: POLYETHYLENE GLYCOL 3350
     Indication: CONSTIPATION
     Route: 048
     Dates: start: 20170919
  34. LORAZEPAM. [Concomitant]
     Active Substance: LORAZEPAM
     Indication: ANXIETY
     Dosage: 2 MG/ML
     Route: 030
     Dates: start: 20170919, end: 20170919
  35. LORAZEPAM. [Concomitant]
     Active Substance: LORAZEPAM
     Route: 042
     Dates: start: 20171101, end: 20171101
  36. LORAZEPAM. [Concomitant]
     Active Substance: LORAZEPAM
     Route: 030
     Dates: start: 20171103, end: 20171103
  37. ALLOPURINOL. [Concomitant]
     Active Substance: ALLOPURINOL
     Route: 048
     Dates: start: 20170920
  38. MORPHINE [Concomitant]
     Active Substance: MORPHINE
     Route: 042
     Dates: start: 20171012, end: 20171012
  39. ATEZOLIZUMAB. [Suspect]
     Active Substance: ATEZOLIZUMAB
     Indication: SMALL CELL LUNG CANCER
     Dosage: START TIME OF INFUSION 15:55, END TIME 16:55
     Route: 042
     Dates: start: 20170921
  40. COLACE [Concomitant]
     Active Substance: DOCUSATE SODIUM
     Indication: CONSTIPATION
     Route: 048
     Dates: start: 20170919
  41. MORPHINE [Concomitant]
     Active Substance: MORPHINE
     Route: 042
     Dates: start: 20171103, end: 20171103
  42. ALOXI [Concomitant]
     Active Substance: PALONOSETRON HYDROCHLORIDE
     Indication: PREMEDICATION
     Route: 042
     Dates: start: 20170921, end: 20170921
  43. ONDANSETRON [Concomitant]
     Active Substance: ONDANSETRON
     Indication: NAUSEA
     Route: 042
     Dates: start: 20171127, end: 20171127
  44. MILK OF MAGNESIA [Concomitant]
     Active Substance: MAGNESIUM HYDROXIDE
     Indication: CONSTIPATION
     Route: 065
     Dates: start: 20170922
  45. ATEZOLIZUMAB. [Suspect]
     Active Substance: ATEZOLIZUMAB
     Route: 042
     Dates: start: 20171101
  46. BLINDED TRILACICLIB [Suspect]
     Active Substance: TRILACICLIB
     Dosage: START TIME OF INFUSION 16:30, END TIME 17:00
     Route: 042
     Dates: start: 20171013
  47. GABAPENTIN. [Concomitant]
     Active Substance: GABAPENTIN
     Indication: BACK INJURY
     Route: 048
     Dates: start: 20170906
  48. FOLIC ACID. [Concomitant]
     Active Substance: FOLIC ACID
     Dosage: FOR DIET SUPPLEMENT
     Route: 048
     Dates: start: 20170922
  49. ROLAPITANT HYDROCHLORIDE [Concomitant]
     Active Substance: ROLAPITANT
     Indication: PREMEDICATION
     Route: 042
     Dates: start: 20171127, end: 20171127
  50. TRAMADOL. [Concomitant]
     Active Substance: TRAMADOL
     Indication: PAIN
     Route: 048
     Dates: start: 20170924
  51. SIMETHICONE (DIMETHICONE) [Concomitant]
     Active Substance: DIMETHICONE
     Dosage: GASTRIC DISTRESS
     Route: 048
     Dates: start: 20170922
  52. IBUPROFEN. [Concomitant]
     Active Substance: IBUPROFEN
     Indication: BACK INJURY
     Route: 048
     Dates: start: 20170821, end: 20170922
  53. IBUPROFEN. [Concomitant]
     Active Substance: IBUPROFEN
     Indication: PAIN
     Route: 048
     Dates: start: 20170922

REACTIONS (1)
  - Thrombosis [Recovered/Resolved]

NARRATIVE: CASE EVENT DATE: 20171108
